FAERS Safety Report 6531841-2 (Version None)
Quarter: 2010Q1

REPORT INFORMATION
  Report Type: 
  Country: None (occurrence: None)
  Receive Date: 20100107
  Receipt Date: 20100107
  Transmission Date: 20100710
  Serious: No
  Sender: FDA-Public Use
  Company Number: None

PATIENT
  Sex: Male
  Weight: 19.0511 kg

DRUGS (2)
  1. SINGULAIR [Suspect]
     Indication: ASTHMA
     Dosage: 1 TABLET DAILY PO
     Route: 048
     Dates: start: 20081101, end: 20091231
  2. SINGULAIR [Suspect]
     Indication: BRONCHIAL HYPERREACTIVITY
     Dosage: 1 TABLET DAILY PO
     Route: 048
     Dates: start: 20081101, end: 20091231

REACTIONS (4)
  - ABNORMAL BEHAVIOUR [None]
  - AFFECT LABILITY [None]
  - AGGRESSION [None]
  - SCREAMING [None]
